FAERS Safety Report 8481222-X (Version None)
Quarter: 2012Q2

REPORT INFORMATION
  Report Type: 
  Country: None (occurrence: None)
  Receive Date: 20120625
  Receipt Date: 20120605
  Transmission Date: 20120825
  Serious: Yes (Other)
  Sender: FDA-Public Use
  Company Number: BR-GDP-12414089

PATIENT
  Sex: Female

DRUGS (1)
  1. TRI-LUMA [Suspect]
     Indication: CHLOASMA
     Dosage: (1 DF QD TOPICAL)
     Route: 061
     Dates: start: 20120522, end: 20120604

REACTIONS (8)
  - EYE PAIN [None]
  - SKIN ODOUR ABNORMAL [None]
  - EYE BURNS [None]
  - EYE PRURITUS [None]
  - OCULAR HYPERAEMIA [None]
  - ACCIDENTAL EXPOSURE [None]
  - MEDICATION RESIDUE [None]
  - EYE IRRITATION [None]
